FAERS Safety Report 5947130-0 (Version None)
Quarter: 2008Q4

REPORT INFORMATION
  Report Type: 
  Country: None (occurrence: None)
  Receive Date: 20081110
  Receipt Date: 20081030
  Transmission Date: 20090506
  Serious: Yes (Other)
  Sender: FDA-Public Use
  Company Number: US-JNJFOC-20080703770

PATIENT
  Sex: Female
  Weight: 67.59 kg

DRUGS (26)
  1. REMICADE [Suspect]
     Route: 042
  2. REMICADE [Suspect]
     Route: 042
  3. REMICADE [Suspect]
     Route: 042
  4. REMICADE [Suspect]
     Route: 042
  5. REMICADE [Suspect]
     Route: 042
  6. REMICADE [Suspect]
     Route: 042
  7. REMICADE [Suspect]
     Route: 042
  8. REMICADE [Suspect]
     Route: 042
  9. REMICADE [Suspect]
     Route: 042
  10. REMICADE [Suspect]
     Route: 042
  11. REMICADE [Suspect]
     Route: 042
  12. REMICADE [Suspect]
     Route: 042
  13. REMICADE [Suspect]
     Route: 042
  14. REMICADE [Suspect]
     Route: 042
  15. REMICADE [Suspect]
     Route: 042
  16. REMICADE [Suspect]
     Route: 042
  17. REMICADE [Suspect]
     Route: 042
  18. REMICADE [Suspect]
     Route: 042
  19. REMICADE [Suspect]
     Route: 042
  20. REMICADE [Suspect]
     Route: 042
  21. REMICADE [Suspect]
     Indication: PSORIATIC ARTHROPATHY
     Route: 042
  22. REMICADE [Suspect]
     Indication: RHEUMATOID ARTHRITIS
     Route: 042
  23. METHOTREXATE [Concomitant]
  24. CHOLESTEROL MEDICATION [Concomitant]
  25. VITAMINS [Concomitant]
  26. ULTRAVATE [Concomitant]

REACTIONS (4)
  - CATARACT [None]
  - OROPHARYNGEAL BLISTERING [None]
  - PSORIASIS [None]
  - URINARY TRACT INFECTION [None]
